FAERS Safety Report 5938714-4 (Version None)
Quarter: 2008Q4

REPORT INFORMATION
  Report Type: 
  Country: None (occurrence: None)
  Receive Date: 20081103
  Receipt Date: 20081021
  Transmission Date: 20090506
  Serious: Yes (Death)
  Sender: FDA-Public Use
  Company Number: SE-ROCHE-592663

PATIENT
  Sex: Male
  Weight: 105 kg

DRUGS (3)
  1. PEG-INTERFERON ALFA 2A (RO 25-8310) [Suspect]
     Indication: HEPATITIS C
     Route: 058
     Dates: start: 20080520, end: 20080922
  2. RIBAVIRIN [Suspect]
     Indication: HEPATITIS C
     Route: 048
     Dates: start: 20080520, end: 20080922
  3. SUBUTEX [Concomitant]
     Dosage: DRUG NAME REPORTED SOBUTEX.
     Route: 048
     Dates: start: 20030101, end: 20080922

REACTIONS (3)
  - CARDIOMYOPATHY [None]
  - PNEUMONIA [None]
  - PULMONARY OEDEMA [None]
